FAERS Safety Report 6141189-6 (Version None)
Quarter: 2009Q1

REPORT INFORMATION
  Report Type: 
  Country: None (occurrence: None)
  Receive Date: 20090330
  Receipt Date: 20090330
  Transmission Date: 20090719
  Serious: No
  Sender: FDA-Public Use
  Company Number: None

PATIENT
  Age: 44 Year
  Sex: Female
  Weight: 90.7194 kg

DRUGS (1)
  1. ZICAM GEL SWABS [Suspect]
     Indication: NASOPHARYNGITIS
     Dosage: 1 SWABSTICK Q 4 HRS NASAL
     Route: 045
     Dates: start: 20090202, end: 20090206

REACTIONS (2)
  - ANOSMIA [None]
  - HYPOGEUSIA [None]
